FAERS Safety Report 21496803 (Version 1)
Quarter: 2022Q4

REPORT INFORMATION
  Report Type: Spontaneous
  Country: FR (occurrence: FR)
  Receive Date: 20221022
  Receipt Date: 20221022
  Transmission Date: 20230112
  Serious: Yes (Hospitalization)
  Sender: FDA-Public Use
  Company Number: None

PATIENT
  Age: 77 Year
  Sex: Male
  Weight: 70 kg

DRUGS (3)
  1. CARBOPLATIN [Suspect]
     Active Substance: CARBOPLATIN
     Indication: Small cell lung cancer metastatic
     Dosage: C1, FREQUENCY TIME : 1 CYCLICAL, DURATION: 1 DAY, UNIT DOSE: 450 MG
     Route: 065
     Dates: start: 20220809, end: 20220809
  2. ETOPOSIDE [Suspect]
     Active Substance: ETOPOSIDE
     Indication: Small cell lung cancer metastatic
     Dosage: C1, FREQUENCY TIME : 1 CYCLICAL, DURATION: 2 DAYS, UNIT DOSE: 150 MG
     Dates: start: 20220809, end: 20220811
  3. IMFINZI [Suspect]
     Active Substance: DURVALUMAB
     Indication: Small cell lung cancer metastatic
     Dosage: C1, FREQUENCY TIME : 1 CYCLICAL, DURATION: 1 DAY, UNIT DOSE: 1500 MG
     Dates: start: 20220809, end: 20220809

REACTIONS (1)
  - Pancytopenia [Recovered/Resolved]

NARRATIVE: CASE EVENT DATE: 20220818
